FAERS Safety Report 16386807 (Version 12)
Quarter: 2020Q3

REPORT INFORMATION
  Report Type: Spontaneous
  Country: JP (occurrence: JP)
  Receive Date: 20190604
  Receipt Date: 20200917
  Transmission Date: 20201102
  Serious: Yes (Hospitalization, Other)
  Sender: FDA-Public Use
  Company Number: JP-BEH-2019102963

PATIENT
  Age: 2 Year
  Sex: Male
  Weight: 13.5 kg

DRUGS (22)
  1. IDELVION [Suspect]
     Active Substance: COAGULATION FACTOR IX RECOMBINANT HUMAN
     Dosage: 500 INTERNATIONAL UNIT, 1 WEEK (ONCE IN 4 DAYS TO 8 DAYS)
     Route: 042
     Dates: start: 20181015, end: 20190502
  2. PREDONINE [Concomitant]
     Active Substance: PREDNISOLONE
     Dosage: UNK
     Route: 048
     Dates: start: 20190502
  3. HOKUNALIN [TULOBUTEROL HYDROCHLORIDE] [Concomitant]
     Indication: BRONCHITIS
     Dosage: 0.5 MILLIGRAM, DAILY
     Route: 062
     Dates: start: 20190427, end: 20190502
  4. ALBUMIN TANNATE [Concomitant]
     Active Substance: ALBUMIN BOVINE\TANNIC ACID
     Indication: DIARRHOEA
     Dosage: ONE THIRD OF DAILY DOSE (1.0), 8 HOURS (3X DAILY)
     Route: 048
     Dates: start: 20190427, end: 20190502
  5. KIPRES [Concomitant]
     Active Substance: MONTELUKAST SODIUM
     Indication: BRONCHITIS
     Dosage: 4 MILLIGRAM, DAILY
     Route: 048
     Dates: start: 20190427, end: 20190502
  6. BENEFIX [Concomitant]
     Active Substance: COAGULATION FACTOR IX RECOMBINANT HUMAN\ISOPROPYL ALCOHOL
     Indication: HAEMORRHAGE
     Dosage: 500 IU, UNK
     Route: 065
     Dates: start: 20190501
  7. BYCLOT [Concomitant]
     Active Substance: COAGULATION FACTOR VII HUMAN\COAGULATION FACTOR X HUMAN
     Indication: HAEMORRHAGE
  8. MIYA?BM [Concomitant]
     Active Substance: CLOSTRIDIUM BUTYRICUM SPORES STRAIN M-55
     Indication: DIARRHOEA
     Dosage: ONE THIRD OF DAILY DOSE (1.0), 8 HOURS (3X DAILY)
     Route: 048
     Dates: start: 20190427, end: 20190502
  9. IDELVION [Suspect]
     Active Substance: COAGULATION FACTOR IX RECOMBINANT HUMAN
     Indication: FACTOR IX DEFICIENCY
     Dosage: 500 IU, TWICE WEEKLY
     Route: 042
     Dates: start: 20180901
  10. IDELVION [Suspect]
     Active Substance: COAGULATION FACTOR IX RECOMBINANT HUMAN
     Dosage: 500 IU, SINGLE
     Route: 042
     Dates: start: 20190502, end: 20190502
  11. XYZAL [Concomitant]
     Active Substance: LEVOCETIRIZINE DIHYDROCHLORIDE
     Indication: RHINITIS
     Dosage: 5 MILLILITER, DAILY
     Route: 048
     Dates: start: 20190427, end: 20190502
  12. IDELVION [Suspect]
     Active Substance: COAGULATION FACTOR IX RECOMBINANT HUMAN
     Indication: HAEMOSTASIS
     Dosage: 500 IU, SINGLE
     Route: 042
     Dates: start: 20190420, end: 20190420
  13. IDELVION [Suspect]
     Active Substance: COAGULATION FACTOR IX RECOMBINANT HUMAN
     Dosage: 500 IU, SINGLE
     Route: 042
     Dates: start: 20190502, end: 20190502
  14. IDELVION [Suspect]
     Active Substance: COAGULATION FACTOR IX RECOMBINANT HUMAN
     Indication: FACTOR IX DEFICIENCY
     Dosage: 500 IU, TWICE WEEKLY
     Route: 042
     Dates: start: 20180901
  15. IDELVION [Suspect]
     Active Substance: COAGULATION FACTOR IX RECOMBINANT HUMAN
     Indication: HAEMOSTASIS
     Dosage: 500 IU, SINGLE
     Route: 042
     Dates: start: 20190420, end: 20190420
  16. IDELVION [Suspect]
     Active Substance: COAGULATION FACTOR IX RECOMBINANT HUMAN
     Dosage: 500 INTERNATIONAL UNIT, 1 WEEK (ONCE IN 4 DAYS TO 8 DAYS)
     Route: 042
     Dates: start: 20181015, end: 20190502
  17. BENEFIX [Concomitant]
     Active Substance: COAGULATION FACTOR IX RECOMBINANT HUMAN\ISOPROPYL ALCOHOL
     Dosage: 500 INTERNATIONAL UNIT, ONCE A WEEK
     Route: 065
     Dates: start: 20170627, end: 20170814
  18. BENEFIX [Concomitant]
     Active Substance: COAGULATION FACTOR IX RECOMBINANT HUMAN\ISOPROPYL ALCOHOL
     Dosage: 500 INTERNATIONAL UNIT, TWICE A WEEK
     Route: 065
     Dates: start: 20170815, end: 20181009
  19. IDELVION [Suspect]
     Active Substance: COAGULATION FACTOR IX RECOMBINANT HUMAN
     Dosage: 500 IU, SINGLE
     Route: 042
     Dates: start: 20190427, end: 20190427
  20. BENEFIX [Concomitant]
     Active Substance: COAGULATION FACTOR IX RECOMBINANT HUMAN\ISOPROPYL ALCOHOL
     Dosage: 500 INTERNATIONAL UNIT, ONCE A WEEK
     Route: 065
     Dates: start: 20170601, end: 20181013
  21. BYCLOT [Concomitant]
     Active Substance: COAGULATION FACTOR VII HUMAN\COAGULATION FACTOR X HUMAN
     Indication: HAEMOSTASIS
     Dosage: UNK, 14 TIMES IN TOTAL
     Route: 065
     Dates: start: 20190502, end: 20190629
  22. IDELVION [Suspect]
     Active Substance: COAGULATION FACTOR IX RECOMBINANT HUMAN
     Dosage: 500 IU, SINGLE
     Route: 042
     Dates: start: 20190427, end: 20190427

REACTIONS (7)
  - Drug ineffective [Unknown]
  - Purpura [Recovered/Resolved]
  - Diarrhoea [Recovered/Resolved]
  - Factor IX inhibition [Recovered/Resolved]
  - Gastroenteritis viral [Recovered/Resolved]
  - Subcutaneous haematoma [Recovered/Resolved]
  - Antiphospholipid antibodies positive [Recovered/Resolved]

NARRATIVE: CASE EVENT DATE: 20190423
